FAERS Safety Report 19940205 (Version 2)
Quarter: 2025Q4

REPORT INFORMATION
  Report Type: Spontaneous
  Country: US (occurrence: None)
  Receive Date: 20211012
  Receipt Date: 20251223
  Transmission Date: 20260118
  Serious: Yes (Hospitalization, Other)
  Sender: AUROBINDO
  Company Number: US-MLMSERVICE-20210922-3120087-1

PATIENT
  Age: 52 Year
  Sex: Female

DRUGS (2)
  1. BUPIVACAINE [Suspect]
     Active Substance: BUPIVACAINE
     Dosage: INTRATHECAL OPIOID PUMP (MEDTRONIC)
  2. FENTANYL [Suspect]
     Active Substance: FENTANYL
     Indication: Pain
     Dosage: INTRATHECAL OPIOID PUMP

REACTIONS (2)
  - Arachnoid web [Recovered/Resolved]
  - Nervous system disorder [Recovered/Resolved]
